FAERS Safety Report 24918545 (Version 1)
Quarter: 2025Q1

REPORT INFORMATION
  Report Type: Spontaneous
  Country: US (occurrence: US)
  Receive Date: 20250203
  Receipt Date: 20250203
  Transmission Date: 20250408
  Serious: Yes (Hospitalization, Other)
  Sender: MERCK
  Company Number: US-009507513-2501USA010499

PATIENT
  Age: 63 Year
  Sex: Male

DRUGS (2)
  1. BRIDION [Suspect]
     Active Substance: SUGAMMADEX SODIUM
  2. PROPOFOL [Suspect]
     Active Substance: PROPOFOL

REACTIONS (4)
  - Bradycardia [Recovered/Resolved]
  - Nodal rhythm [Recovered/Resolved]
  - Cardiac arrest [Recovered/Resolved]
  - Tachycardia [Recovered/Resolved]
